FAERS Safety Report 23248350 (Version 3)
Quarter: 2024Q2

REPORT INFORMATION
  Report Type: Spontaneous
  Country: US (occurrence: US)
  Receive Date: 20231201
  Receipt Date: 20240605
  Transmission Date: 20240716
  Serious: Yes (Other)
  Sender: FDA-Public Use
  Company Number: US-JNJFOC-20231169805

PATIENT
  Sex: Male

DRUGS (5)
  1. RISPERDAL [Suspect]
     Active Substance: RISPERIDONE
     Indication: Depression
     Route: 048
  2. RISPERDAL [Suspect]
     Active Substance: RISPERIDONE
     Indication: Hallucinations, mixed
  3. INVEGA [Suspect]
     Active Substance: PALIPERIDONE
     Indication: Behaviour disorder
     Dosage: VARYING DOSES OF 1.5 AND 3 MG
     Route: 048
  4. INVEGA [Suspect]
     Active Substance: PALIPERIDONE
     Indication: Affective disorder
  5. INVEGA [Suspect]
     Active Substance: PALIPERIDONE
     Indication: Tic

REACTIONS (5)
  - Gynaecomastia [Not Recovered/Not Resolved]
  - Obesity [Unknown]
  - Blood triglycerides increased [Unknown]
  - Blood prolactin increased [Unknown]
  - Drug ineffective [Unknown]
